FAERS Safety Report 11334774 (Version 1)
Quarter: 2015Q3

REPORT INFORMATION
  Report Type: Spontaneous
  Country: CA (occurrence: None)
  Receive Date: 20150731
  Receipt Date: 20150731
  Transmission Date: 20151125
  Serious: Yes (Life-Threatening, Other)
  Sender: FDA-Public Use
  Company Number: CA-2015VAL000490

PATIENT
  Age: 67 Year
  Sex: Male

DRUGS (11)
  1. SANDOSTATIN LAR DEPOT [Suspect]
     Active Substance: OCTREOTIDE ACETATE
     Indication: CARCINOID SYNDROME
     Route: 030
     Dates: start: 20111012
  2. NOVORAPID [Concomitant]
     Active Substance: INSULIN ASPART
  3. CRESTOR [Concomitant]
     Active Substance: ROSUVASTATIN CALCIUM
  4. GLIMEPIRIDE. [Concomitant]
     Active Substance: GLIMEPIRIDE
  5. RABEPRAZOLE [Concomitant]
     Active Substance: RABEPRAZOLE
  6. ASAPHEN [Concomitant]
     Active Substance: ASPIRIN
  7. SANDOSTATIN [Suspect]
     Active Substance: OCTREOTIDE ACETATE
     Indication: CARCINOID SYNDROME
     Dosage: UNK UG, ONCE/SINGLE, SUBCUTANEOUS
     Route: 058
     Dates: start: 20110927, end: 20110927
  8. METFORMIN [Concomitant]
     Active Substance: METFORMIN HYDROCHLORIDE
  9. LANTUS [Concomitant]
     Active Substance: INSULIN GLARGINE
  10. RAMIPRIL. [Concomitant]
     Active Substance: RAMIPRIL
  11. METOPROLOL TARTRATE. [Suspect]
     Active Substance: METOPROLOL TARTRATE
     Indication: PRODUCT USED FOR UNKNOWN INDICATION
     Route: 048

REACTIONS (12)
  - Abdominal mass [None]
  - Incorrect dose administered [None]
  - Feeling abnormal [None]
  - Diarrhoea [None]
  - Macular degeneration [None]
  - Discomfort [None]
  - Nausea [None]
  - Gastrointestinal hypomotility [None]
  - Drug ineffective [None]
  - Abdominal distension [None]
  - Blood pressure systolic increased [None]
  - Hyperhidrosis [None]

NARRATIVE: CASE EVENT DATE: 20111012
